FAERS Safety Report 9441322 (Version 1)
Quarter: 2013Q3

REPORT INFORMATION
  Report Type: Spontaneous
  Country: US (occurrence: US)
  Receive Date: 20130805
  Receipt Date: 20130805
  Transmission Date: 20140515
  Serious: Yes (Life-Threatening, Other)
  Sender: FDA-Public Use
  Company Number: CHPA2013US012139

PATIENT
  Age: 74 Year
  Sex: Female

DRUGS (8)
  1. PERDIEM FIBER [Suspect]
     Indication: MUSCLE DISORDER
     Dosage: 3 TSP, QOD
     Route: 048
  2. PERDIEM FIBER [Suspect]
     Indication: BOWEL MOVEMENT IRREGULARITY
  3. PERDIEM OVERNIGHT RELIEF PILLS [Suspect]
     Indication: MUSCLE DISORDER
     Dosage: 2 TO 3 PILLS PER DAY
     Route: 048
  4. PERDIEM OVERNIGHT RELIEF PILLS [Suspect]
     Indication: BOWEL MOVEMENT IRREGULARITY
  5. PRODIEM PLUS [Suspect]
     Indication: BOWEL MOVEMENT IRREGULARITY
     Dosage: 3 TSP, QOD
     Route: 048
  6. PRODIEM PLUS [Suspect]
     Indication: MUSCLE DISORDER
  7. MIRALAX [Concomitant]
     Indication: BOWEL MOVEMENT IRREGULARITY
     Dosage: UNK, UNK
  8. CELEBREX [Concomitant]
     Indication: ARTHRITIS
     Dosage: UNK, UNK

REACTIONS (10)
  - Choking [Recovered/Resolved]
  - Influenza [Recovered/Resolved]
  - Arthritis [Not Recovered/Not Resolved]
  - Limb discomfort [Unknown]
  - Abdominal pain upper [Unknown]
  - Drug ineffective [Unknown]
  - Foreign body [Recovered/Resolved]
  - Off label use [Unknown]
  - Incorrect dose administered [Unknown]
  - Incorrect drug administration duration [Unknown]
